FAERS Safety Report 8309996-9 (Version None)
Quarter: 2012Q2

REPORT INFORMATION
  Report Type: 
  Country: None (occurrence: None)
  Receive Date: 20120425
  Receipt Date: 20120420
  Transmission Date: 20120825
  Serious: Yes (Other)
  Sender: FDA-Public Use
  Company Number: US-PFIZER INC-2012098546

PATIENT
  Sex: Female
  Weight: 52.608 kg

DRUGS (5)
  1. PRISTIQ [Suspect]
     Indication: DEPRESSION
     Dosage: 100 MG, DAILY
     Route: 048
     Dates: start: 20110101
  2. PRISTIQ [Suspect]
     Dosage: UNK
     Route: 048
     Dates: end: 20110101
  3. VALIUM [Concomitant]
     Indication: DEPRESSION
  4. SYNTHROID [Concomitant]
     Indication: THYROID DISORDER
     Dosage: 100 UG, DAILY
  5. VALIUM [Concomitant]
     Indication: ANXIETY
     Dosage: 10 MG, DAILY
     Route: 048

REACTIONS (5)
  - NAUSEA [None]
  - FEELING ABNORMAL [None]
  - DIZZINESS [None]
  - DRUG DEPENDENCE [None]
  - NERVOUS SYSTEM DISORDER [None]
